FAERS Safety Report 10081875 (Version 2)
Quarter: 2014Q2

REPORT INFORMATION
  Report Type: Spontaneous
  Country: JP (occurrence: JP)
  Receive Date: 20140416
  Receipt Date: 20140430
  Transmission Date: 20141212
  Serious: Yes (Other)
  Sender: FDA-Public Use
  Company Number: JP-PFIZER INC-2014101500

PATIENT
  Age: 75 Year
  Sex: Male

DRUGS (3)
  1. ZITHROMAC [Suspect]
     Dosage: 500 MG, DAILY
     Route: 048
     Dates: start: 20131210
  2. ASTOMIN [Concomitant]
     Dosage: UNK
     Route: 048
  3. MUCODYNE [Concomitant]
     Dosage: UNK
     Route: 048

REACTIONS (1)
  - Rhabdomyolysis [Recovered/Resolved]
